FAERS Safety Report 5669964-2 (Version None)
Quarter: 2008Q1

REPORT INFORMATION
  Report Type: 
  Country: None (occurrence: None)
  Receive Date: 20080317
  Receipt Date: 20080305
  Transmission Date: 20080703
  Serious: Yes (Death, Hospitalization)
  Sender: FDA-Public Use
  Company Number: DE-GENENTECH-255081

PATIENT
  Sex: Female
  Weight: 66.3 kg

DRUGS (11)
  1. BEVACIZUMAB [Suspect]
     Indication: NON-SMALL CELL LUNG CANCER
     Dosage: 990 MG, Q3W
     Route: 042
     Dates: start: 20071023
  2. CISPLATIN [Suspect]
     Indication: NON-SMALL CELL LUNG CANCER
     Dosage: 90 MG, UNK
     Route: 042
     Dates: start: 20071023
  3. GEMZAR [Suspect]
     Indication: NON-SMALL CELL LUNG CANCER
     Dosage: 2260 MG, UNK
     Route: 042
     Dates: start: 20071023
  4. CARBOPLATIN [Suspect]
     Indication: NON-SMALL CELL LUNG CANCER
     Dosage: 525 MG, UNK
     Route: 042
     Dates: start: 20071113
  5. CARBOPLATIN [Suspect]
     Dates: start: 20071120
  6. NOVALGIN [Concomitant]
     Indication: DRUG USE FOR UNKNOWN INDICATION
  7. OMEPRAZOLE [Concomitant]
     Indication: DRUG USE FOR UNKNOWN INDICATION
  8. FENTANYL [Concomitant]
     Indication: DRUG USE FOR UNKNOWN INDICATION
     Dates: start: 20070615
  9. LERCANIDIPINE [Concomitant]
     Indication: DRUG USE FOR UNKNOWN INDICATION
  10. JODID [Concomitant]
     Indication: DRUG USE FOR UNKNOWN INDICATION
  11. UNSPECIFIED DRUG [Concomitant]
     Indication: DRUG USE FOR UNKNOWN INDICATION

REACTIONS (3)
  - CHEST PAIN [None]
  - PULMONARY EMBOLISM [None]
  - VOMITING [None]
